FAERS Safety Report 6559289-5 (Version None)
Quarter: 2010Q1

REPORT INFORMATION
  Report Type: 
  Country: None (occurrence: None)
  Receive Date: 20100129
  Receipt Date: 20091022
  Transmission Date: 20100710
  Serious: No
  Sender: FDA-Public Use
  Company Number: US-ABBOTT-09P-163-0592768-00

PATIENT
  Sex: Male

DRUGS (2)
  1. HUMIRA [Suspect]
     Indication: CROHN'S DISEASE
     Dates: start: 20090101
  2. HUMIRA [Suspect]

REACTIONS (3)
  - DRUG DOSE OMISSION [None]
  - INJECTION SITE HAEMORRHAGE [None]
  - SKIN LESION [None]
